FAERS Safety Report 23738078 (Version 1)
Quarter: 2024Q2

REPORT INFORMATION
  Report Type: Spontaneous
  Country: US (occurrence: None)
  Receive Date: 20240412
  Receipt Date: 20240412
  Transmission Date: 20240716
  Serious: Yes (Hospitalization)
  Sender: FDA-Public Use
  Company Number: None

PATIENT
  Age: 64 Year
  Sex: Female

DRUGS (10)
  1. STELARA [Suspect]
     Active Substance: USTEKINUMAB
     Indication: Crohn^s disease
     Dosage: OTHER FREQUENCY : EVERY 8 WEEKS;?
     Route: 058
     Dates: start: 20190924
  2. IBUSPIRONE [Concomitant]
  3. DIAZEPAM [Concomitant]
     Active Substance: DIAZEPAM
  4. DICYCLOMINE [Concomitant]
  5. ESTRADIOL [Concomitant]
  6. FLUCONAZOLE [Concomitant]
  7. FOLIC ACID [Concomitant]
  8. HYDROCORT AC SUP [Concomitant]
  9. LEVOTHYROXIN [Concomitant]
  10. MELOXICAM [Concomitant]

REACTIONS (2)
  - Infection [None]
  - Quality of life decreased [None]

NARRATIVE: CASE EVENT DATE: 20240325
